FAERS Safety Report 9234725 (Version 1)
Quarter: 2013Q2

REPORT INFORMATION
  Report Type: Report from Study
  Country: FR (occurrence: FR)
  Receive Date: 20130416
  Receipt Date: 20130416
  Transmission Date: 20140414
  Serious: Yes (Hospitalization)
  Sender: FDA-Public Use
  Company Number: FR-CELGENEUS-056-50794-13040740

PATIENT
  Age: 84 Year
  Sex: Female
  Weight: 72 kg

DRUGS (1)
  1. VIDAZA [Suspect]
     Indication: PRODUCT USED FOR UNKNOWN INDICATION
     Dosage: 2 DOSAGE FORMS
     Route: 065
     Dates: start: 20111210

REACTIONS (2)
  - Pyrexia [Recovered/Resolved]
  - Loss of consciousness [Recovered/Resolved]
